FAERS Safety Report 15763146 (Version 2)
Quarter: 2018Q4

REPORT INFORMATION
  Report Type: Report from Study
  Country: TW (occurrence: TW)
  Receive Date: 20181226
  Receipt Date: 20181231
  Transmission Date: 20190205
  Serious: Yes (Hospitalization, Other)
  Sender: FDA-Public Use
  Company Number: TW-AMGEN-TWNCT2018183797

PATIENT
  Age: 53 Year
  Sex: Male
  Weight: 62.7 kg

DRUGS (14)
  1. NICORANDIL [Concomitant]
     Active Substance: NICORANDIL
     Dosage: 10 MG, UNK
     Route: 048
     Dates: start: 20181114
  2. DEXTROSE. [Concomitant]
     Active Substance: DEXTROSE
     Dosage: 40 ML, UNK
     Route: 042
     Dates: start: 20160705
  3. BISOPROLOL FUMARATE. [Concomitant]
     Active Substance: BISOPROLOL FUMARATE
     Dosage: 1.25 MG, UNK
     Route: 048
     Dates: start: 20180822
  4. CALCITRIOL. [Concomitant]
     Active Substance: CALCITRIOL
     Dosage: 1 MUG, UNK
     Route: 042
     Dates: start: 20180727
  5. NITROSTAT [Concomitant]
     Active Substance: NITROGLYCERIN
     Dosage: 0.6 MG, UNK
     Route: 060
     Dates: start: 20181109
  6. FERRIC HYDROXIDE SUCROSE COMPLEX [Concomitant]
     Dosage: 100 MG, UNK
     Route: 042
     Dates: start: 20150923
  7. VALSARTAN. [Concomitant]
     Active Substance: VALSARTAN
     Dosage: 40 MG, UNK
     Route: 048
     Dates: start: 20180815
  8. CINACALCET HCL [Concomitant]
     Active Substance: CINACALCET HYDROCHLORIDE
     Dosage: 1 UNK, UNK
     Route: 048
     Dates: start: 201312
  9. HEPARIN SODIUM. [Concomitant]
     Active Substance: HEPARIN SODIUM
     Dosage: 400 UNK, UNK
     Route: 042
     Dates: start: 20141029
  10. ETELCALCETIDE [Suspect]
     Active Substance: ETELCALCETIDE
     Indication: HYPERPARATHYROIDISM SECONDARY
     Dosage: 5 MG, UNK
     Route: 065
     Dates: start: 20180928
  11. CALCIUM CARBONATE. [Concomitant]
     Active Substance: CALCIUM CARBONATE
     Dosage: 0.5 MG, UNK
     Route: 048
     Dates: start: 20181119
  12. PARAMOL [Concomitant]
     Dosage: 1500 MG, UNK
     Route: 048
     Dates: start: 20181105
  13. EPOETIN BETA RECOMBINANT [Concomitant]
     Dosage: 2000 IU, UNK
     Route: 042
     Dates: start: 20160714
  14. NIFEDIPINE. [Concomitant]
     Active Substance: NIFEDIPINE
     Dosage: 30 MG, UNK
     Route: 048
     Dates: start: 20180815

REACTIONS (1)
  - Pneumonia [Recovered/Resolved]

NARRATIVE: CASE EVENT DATE: 20181219
